FAERS Safety Report 7549968-5 (Version None)
Quarter: 2011Q2

REPORT INFORMATION
  Report Type: 
  Country: None (occurrence: None)
  Receive Date: 20110615
  Receipt Date: 20110610
  Transmission Date: 20111010
  Serious: Yes (Other)
  Sender: FDA-Public Use
  Company Number: US-PFIZER INC-2011025789

PATIENT
  Sex: Male

DRUGS (1)
  1. CHANTIX [Suspect]
     Indication: TOBACCO ABUSE
     Dosage: 1 MG, 2X/DAY
     Route: 048
     Dates: start: 20101206, end: 20110127

REACTIONS (10)
  - EYE PRURITUS [None]
  - MEMORY IMPAIRMENT [None]
  - AGITATION [None]
  - DRY EYE [None]
  - MOOD ALTERED [None]
  - EYE PAIN [None]
  - AMNESIA [None]
  - FATIGUE [None]
  - MYALGIA [None]
  - ARTHRALGIA [None]
